FAERS Safety Report 8030723-7 (Version None)
Quarter: 2012Q1

REPORT INFORMATION
  Report Type: 
  Country: None (occurrence: None)
  Receive Date: 20120109
  Receipt Date: 20111229
  Transmission Date: 20120608
  Serious: Yes (Death, Hospitalization, Other)
  Sender: FDA-Public Use
  Company Number: US-AMGEN-USASP2011031303

PATIENT
  Age: 71 Year
  Sex: Male
  Weight: 73.7 kg

DRUGS (18)
  1. PAXIL [Concomitant]
     Indication: ANXIETY
     Dosage: 40 MG, QD
     Route: 051
  2. ALTACE [Concomitant]
     Indication: HYPERTENSION
     Dosage: 20 MG, QD
     Route: 051
  3. IBUPROFEN (ADVIL) [Concomitant]
     Indication: ARTHRALGIA
     Dosage: 200 MG, PRN
     Route: 051
  4. NASAL SPRAY II [Concomitant]
     Indication: SINUSITIS
     Dosage: UNK UNK, PRN
     Dates: start: 20080311
  5. IMODIUM [Concomitant]
     Indication: DIARRHOEA
     Dosage: UNK UNK, PRN
     Route: 051
     Dates: start: 20090317
  6. TRAMADOL HCL [Concomitant]
     Indication: PAIN
     Dosage: 50 MG, Q6H
     Dates: start: 20110203
  7. OSCAL [Concomitant]
     Indication: SUPPLEMENTATION THERAPY
     Dosage: 500 MG, QID
     Route: 051
     Dates: start: 20050729
  8. SENOKOT [Concomitant]
     Indication: DIARRHOEA
     Dosage: UNK UNK, PRN
     Route: 051
     Dates: start: 20090317
  9. HYDROCHLOROTHIAZIDE [Concomitant]
     Indication: HYPERTENSION
     Dosage: 12.5 UNK, UNK
     Route: 051
     Dates: start: 20100109
  10. VITAMIN D [Concomitant]
  11. PREDNISONE TAB [Concomitant]
     Dosage: 5 MG, BID
     Route: 051
  12. CLARINEX [Concomitant]
     Indication: HYPERSENSITIVITY
     Dosage: UNK UNK, PRN
     Route: 051
     Dates: start: 20090602
  13. NEULASTA [Suspect]
     Dosage: 6 MG, UNK
     Route: 058
     Dates: start: 20101201, end: 20110528
  14. FOSAMAX [Concomitant]
     Indication: OSTEOPOROSIS
     Dosage: 70 MG, QWK
     Dates: start: 20090930
  15. GELCLAIR              G [Concomitant]
     Indication: MUCOSAL INFLAMMATION
     Dosage: 15 ML, PRN
     Route: 051
     Dates: start: 20100105
  16. ASPIRIN [Suspect]
     Indication: PROPHYLAXIS
  17. XGEVA [Suspect]
     Indication: METASTASES TO BONE
     Dosage: 120 MG, UNK
     Route: 058
     Dates: start: 20110527
  18. CALCIUM ACETATE [Concomitant]

REACTIONS (5)
  - HYPOPHOSPHATAEMIA [None]
  - DEATH [None]
  - HYPOCALCAEMIA [None]
  - ELECTROCARDIOGRAM ABNORMAL [None]
  - SUBDURAL HAEMATOMA [None]
